FAERS Safety Report 9975812 (Version 2)
Quarter: 2014Q1

REPORT INFORMATION
  Report Type: Spontaneous
  Country: FR (occurrence: FR)
  Receive Date: 20140306
  Receipt Date: 20140312
  Transmission Date: 20141002
  Serious: Yes (Death, Other)
  Sender: FDA-Public Use
  Company Number: CHPA2014FR003320

PATIENT
  Age: 72 Year
  Sex: Male

DRUGS (9)
  1. SCOPODERM TTS [Suspect]
     Route: 062
  2. DUROGESIC [Suspect]
     Indication: PAIN
     Dosage: 75 UG, UNK
     Route: 062
     Dates: start: 20131129
  3. DUROGESIC [Suspect]
     Dosage: 50 UG, UNK
     Route: 062
     Dates: start: 20131118, end: 20131127
  4. LAROXYL [Suspect]
     Indication: PAIN
     Dosage: UNK
     Route: 048
     Dates: start: 20130218
  5. ALPRAZOLAM [Suspect]
     Dosage: UNK UNK, TID
     Route: 048
  6. SCOPOLAMINE [Suspect]
     Dosage: 0.25 MG, UNK
     Route: 042
     Dates: start: 20131122, end: 20131130
  7. MORPHINE [Suspect]
     Dosage: 5 MG, UNK
     Route: 042
     Dates: start: 20131118, end: 20131130
  8. METHYLPREDNISOLONE [Concomitant]
     Route: 042
  9. ACETAMINOPHEN [Concomitant]
     Dosage: 3 G, QD

REACTIONS (3)
  - Disturbance in attention [Fatal]
  - Bronchial obstruction [Unknown]
  - Unresponsive to stimuli [Unknown]
